FAERS Safety Report 9388018 (Version 1)
Quarter: 2013Q3

REPORT INFORMATION
  Report Type: Spontaneous
  Country: IT (occurrence: None)
  Receive Date: 20130703
  Receipt Date: 20130703
  Transmission Date: 20140515
  Serious: Yes (Hospitalization, Other)
  Sender: FDA-Public Use
  Company Number: 2013P1010810

PATIENT
  Age: 64 Year
  Sex: Female

DRUGS (2)
  1. HYDROCORTISONE [Suspect]
     Indication: PREMATURE MENOPAUSE
     Dosage: PRN; IM
     Route: 030
  2. HYDROCORTISONE [Suspect]
     Indication: HYPOTENSION
     Dosage: PRN; IM
     Route: 030

REACTIONS (1)
  - Anaphylactic reaction [None]
